FAERS Safety Report 13152106 (Version 1)
Quarter: 2017Q1

REPORT INFORMATION
  Report Type: Spontaneous
  Country: US (occurrence: US)
  Receive Date: 20170125
  Receipt Date: 20170125
  Transmission Date: 20170428
  Serious: Yes (Other)
  Sender: FDA-Public Use
  Company Number: US-BAUSCH-BL-2017-001899

PATIENT
  Age: 37 Year

DRUGS (1)
  1. UCERIS [Suspect]
     Active Substance: BUDESONIDE
     Indication: COLITIS ULCERATIVE
     Route: 065

REACTIONS (5)
  - Colectomy [Recovering/Resolving]
  - Drug ineffective [Unknown]
  - Osteoporosis [Unknown]
  - Cardiac disorder [Unknown]
  - Blood pressure abnormal [Unknown]
